FAERS Safety Report 15110731 (Version 1)
Quarter: 2018Q3

REPORT INFORMATION
  Report Type: Spontaneous
  Country: CN (occurrence: CN)
  Receive Date: 20180705
  Receipt Date: 20180705
  Transmission Date: 20181010
  Serious: Yes (Hospitalization, Other)
  Sender: FDA-Public Use
  Company Number: CN-PFIZER INC-2018266293

PATIENT
  Age: 69 Year
  Sex: Female
  Weight: 76 kg

DRUGS (2)
  1. PHARMORUBICIN [Suspect]
     Active Substance: EPIRUBICIN
     Dosage: 65 MG, 1X/DAY
     Route: 041
     Dates: start: 20180317, end: 20180318
  2. ENDOXAN?BAXTER [Concomitant]
     Active Substance: CYCLOPHOSPHAMIDE
     Dosage: 1 G, 1X/DAY
     Route: 041
     Dates: start: 20180317, end: 20180317

REACTIONS (3)
  - Electrocardiogram abnormal [Recovering/Resolving]
  - Chest discomfort [Recovering/Resolving]
  - Atrioventricular block first degree [Recovering/Resolving]

NARRATIVE: CASE EVENT DATE: 20180408
